FAERS Safety Report 22259206 (Version 2)
Quarter: 2023Q2

REPORT INFORMATION
  Report Type: Report from Study
  Country: US (occurrence: US)
  Receive Date: 20230427
  Receipt Date: 20230502
  Transmission Date: 20230721
  Serious: No
  Sender: FDA-Public Use
  Company Number: US-002147023-NVSC2022US303822

PATIENT
  Sex: Female

DRUGS (1)
  1. ORPHENADRINE CITRATE [Suspect]
     Active Substance: ORPHENADRINE CITRATE
     Indication: Muscle spasms
     Dosage: UNK
     Route: 065

REACTIONS (3)
  - Muscle spasms [Unknown]
  - Dry mouth [Unknown]
  - Nausea [Unknown]
